FAERS Safety Report 5132281-3 (Version None)
Quarter: 2006Q4

REPORT INFORMATION
  Report Type: 
  Country: None (occurrence: None)
  Receive Date: 20061011
  Receipt Date: 20061011
  Transmission Date: 20070319
  Serious: Yes (Hospitalization)
  Sender: FDA-Public Use
  Company Number: None

PATIENT
  Age: 45 Year
  Sex: Female
  Weight: 47.6277 kg

DRUGS (37)
  1. ABRAXANE [Suspect]
     Indication: NEOPLASM RECURRENCE
     Dosage: 145.0MG/M2  D1,D8,D15  042    OVER 30 MINS
     Dates: start: 20060330
  2. ABRAXANE [Suspect]
     Indication: OVARIAN CANCER
     Dosage: 145.0MG/M2  D1,D8,D15  042    OVER 30 MINS
     Dates: start: 20060330
  3. CARBOPLATIN [Suspect]
     Indication: NEOPLASM RECURRENCE
     Dosage: 465 MG/M2  D1  042   OVER 1 HOUR
     Dates: start: 20060315
  4. CARBOPLATIN [Suspect]
     Indication: OVARIAN CANCER
     Dosage: 465 MG/M2  D1  042   OVER 1 HOUR
     Dates: start: 20060315
  5. DOXIL [Suspect]
     Indication: NEOPLASM RECURRENCE
     Dosage: 58.0  EVERY 28 DAYS  042   OVER 2 HOURS
     Dates: start: 20060525
  6. DOXIL [Suspect]
     Indication: OVARIAN CANCER
     Dosage: 58.0  EVERY 28 DAYS  042   OVER 2 HOURS
     Dates: start: 20060525
  7. ATIVAN [Concomitant]
  8. HYDROMORPHONE HCL [Concomitant]
  9. ZOFRAN [Concomitant]
  10. HYPERAL AD CENTR [Concomitant]
  11. FENTANYL TRANSDERMAL SYSTEM [Concomitant]
  12. NALOXONE (NARCAN) [Concomitant]
  13. REGLAN [Concomitant]
  14. DIPHENHYDRAMINE (BENADRYL) [Concomitant]
  15. AMBIEN [Concomitant]
  16. OXYCODONE-ACET [Concomitant]
  17. DEXTROSE [Concomitant]
  18. D5/0.45NACL [Concomitant]
  19. AMITRIPTYLINE (ELVAIL) [Concomitant]
  20. BLD GLUCOSE [Concomitant]
  21. SOD CL 0.9% [Concomitant]
  22. PANTOPRAZOLE SODIUM [Concomitant]
  23. ESTRADIOL (VIVELLE) [Concomitant]
  24. LEVAQUIN [Concomitant]
  25. FAT EMULSION 20% [Concomitant]
  26. PROTONIX [Concomitant]
  27. HEPANIE FLUSH [Concomitant]
  28. ESTRADEM PATCH [Concomitant]
  29. DECADRON [Concomitant]
  30. TAGAMENT [Concomitant]
  31. NEXIUM [Concomitant]
  32. EMMEND [Concomitant]
  33. NEUPOGEN [Concomitant]
  34. ARANESP [Concomitant]
  35. ABRAXANE [Concomitant]
  36. CARBOPLATIN [Concomitant]
  37. DOXIL [Concomitant]

REACTIONS (4)
  - CONSTIPATION [None]
  - NAUSEA [None]
  - PAIN [None]
  - VOMITING [None]
